FAERS Safety Report 5574715-6 (Version None)
Quarter: 2007Q4

REPORT INFORMATION
  Report Type: 
  Country: None (occurrence: None)
  Receive Date: 20071221
  Receipt Date: 20071221
  Transmission Date: 20080405
  Serious: Yes (Other)
  Sender: FDA-Public Use
  Company Number: None

PATIENT
  Age: 25 Year
  Sex: Female
  Weight: 56.6996 kg

DRUGS (3)
  1. SERTRALINE [Suspect]
     Indication: ANXIETY
     Dosage: 200MG DAILY PO
     Route: 048
     Dates: start: 20071113, end: 20071220
  2. SERTRALINE [Suspect]
     Indication: DEPRESSION
     Dosage: 200MG DAILY PO
     Route: 048
     Dates: start: 20071113, end: 20071220
  3. SERTRALINE [Suspect]

REACTIONS (3)
  - ANXIETY [None]
  - CHEST PAIN [None]
  - PHARMACEUTICAL PRODUCT COMPLAINT [None]
